FAERS Safety Report 18493413 (Version 3)
Quarter: 2022Q2

REPORT INFORMATION
  Report Type: Spontaneous
  Country: US (occurrence: US)
  Receive Date: 20201111
  Receipt Date: 20220510
  Transmission Date: 20220721
  Serious: Yes (Disabling, Other)
  Sender: FDA-Public Use
  Company Number: US-PURDUE-USA-2020-0173582

PATIENT
  Sex: Male

DRUGS (2)
  1. OXYCONTIN [Suspect]
     Active Substance: OXYCODONE HYDROCHLORIDE
     Indication: Product used for unknown indication
     Dosage: UNK, 6 TIMES A DAY
     Route: 048
     Dates: start: 2002, end: 2011
  2. OXYCONTIN [Suspect]
     Active Substance: OXYCODONE HYDROCHLORIDE
     Dosage: UNK
     Route: 048
     Dates: start: 2004, end: 2016

REACTIONS (6)
  - Myocardial infarction [Unknown]
  - Coma [Unknown]
  - Learning disability [Unknown]
  - Seizure [Unknown]
  - Feeling abnormal [Unknown]
  - Product prescribing error [Unknown]
